FAERS Safety Report 21556255 (Version 1)
Quarter: 2022Q4

REPORT INFORMATION
  Report Type: Spontaneous
  Country: US (occurrence: US)
  Receive Date: 20221104
  Receipt Date: 20221104
  Transmission Date: 20230113
  Serious: Yes (Other)
  Sender: FDA-Public Use
  Company Number: US-SAMSUNG BIOEPIS-SB-2022-28036

PATIENT
  Age: 20 Year
  Sex: Male

DRUGS (3)
  1. INFLIXIMAB [Suspect]
     Active Substance: INFLIXIMAB
     Indication: Iridocyclitis
     Dosage: UNKNOWN
     Route: 065
  2. ADALIMUMAB [Suspect]
     Active Substance: ADALIMUMAB
     Indication: Iridocyclitis
     Dosage: UNKNOWN
     Route: 065
  3. METHOTREXATE [Concomitant]
     Active Substance: METHOTREXATE
     Indication: Iridocyclitis
     Dosage: UNKNOWN
     Route: 065

REACTIONS (4)
  - Ocular hypertension [Unknown]
  - Iris adhesions [Unknown]
  - Cataract subcapsular [Unknown]
  - Off label use [Unknown]
